FAERS Safety Report 8165012-3 (Version None)
Quarter: 2012Q1

REPORT INFORMATION
  Report Type: 
  Country: None (occurrence: None)
  Receive Date: 20120227
  Receipt Date: 20120214
  Transmission Date: 20120608
  Serious: No
  Sender: FDA-Public Use
  Company Number: US-BIOGENIDEC-2012BI005893

PATIENT
  Sex: Female

DRUGS (1)
  1. AVONEX [Suspect]
     Indication: MULTIPLE SCLEROSIS
     Route: 030

REACTIONS (5)
  - HYPOAESTHESIA [None]
  - MOBILITY DECREASED [None]
  - GAIT DISTURBANCE [None]
  - PARAESTHESIA [None]
  - PARAESTHESIA ORAL [None]
